FAERS Safety Report 5339384-9 (Version None)
Quarter: 2007Q2

REPORT INFORMATION
  Report Type: 
  Country: None (occurrence: None)
  Receive Date: 20070322
  Receipt Date: 20070109
  Transmission Date: 20071010
  Serious: Yes (Other)
  Sender: FDA-Public Use
  Company Number: 200613729BCC

PATIENT
  Age: 76 Year
  Sex: Female
  Weight: 59.8748 kg

DRUGS (7)
  1. ALEVE [Suspect]
     Dosage: SEE IMAGE; ORAL
     Route: 048
     Dates: start: 20060830
  2. ALEVE [Suspect]
     Dosage: SEE IMAGE; ORAL
     Route: 048
     Dates: start: 20060901
  3. ALEVE [Suspect]
     Dosage: SEE IMAGE; ORAL
     Route: 048
     Dates: start: 20061016
  4. WELLBUTRIN XL [Concomitant]
  5. LOTRONEX [Concomitant]
  6. LEVOTHYROXINE SODIUM [Concomitant]
  7. DETROL LA [Concomitant]

REACTIONS (2)
  - HAEMATOCHEZIA [None]
  - STOMACH DISCOMFORT [None]
